FAERS Safety Report 20807468 (Version 1)
Quarter: 2022Q2

REPORT INFORMATION
  Report Type: Spontaneous
  Country: SZ (occurrence: SZ)
  Receive Date: 20220510
  Receipt Date: 20220510
  Transmission Date: 20220721
  Serious: Yes (Other)
  Sender: FDA-Public Use
  Company Number: APR26150

PATIENT
  Sex: Female

DRUGS (4)
  1. LAMIVUDINE [Suspect]
     Active Substance: LAMIVUDINE
     Indication: Product used for unknown indication
     Dosage: ONE COURSE, IN THE SECOND TRIMESTER
     Route: 064
  2. LOPINAVIR\RITONAVIR [Suspect]
     Active Substance: LOPINAVIR\RITONAVIR
     Indication: Product used for unknown indication
     Dosage: ONE COURSE
     Route: 064
  3. TENOFOVIR DISOPROXIL FUMARATE [Suspect]
     Active Substance: TENOFOVIR DISOPROXIL FUMARATE
     Indication: Product used for unknown indication
     Dosage: ONE COURSE, FIRST TRIMESTER
     Route: 064
  4. ZIDOVUDINE [Suspect]
     Active Substance: ZIDOVUDINE
     Indication: Product used for unknown indication
     Dosage: ONE COURSE IN THE SECOND TRIMESTER AT A DOSE OF 2 MG/KG/HR
     Route: 064

REACTIONS (7)
  - Meningomyelocele [Unknown]
  - Arnold-Chiari malformation [Unknown]
  - Neonatal respiratory distress syndrome [Unknown]
  - Hyperbilirubinaemia neonatal [Unknown]
  - Necrotising colitis [Recovered/Resolved]
  - Macrocephaly [Unknown]
  - Foetal exposure during pregnancy [Unknown]
